FAERS Safety Report 8285725-2 (Version None)
Quarter: 2012Q2

REPORT INFORMATION
  Report Type: 
  Country: None (occurrence: None)
  Receive Date: 20120413
  Receipt Date: 20120406
  Transmission Date: 20120825
  Serious: Yes (Other)
  Sender: FDA-Public Use
  Company Number: GXBR2012US001067

PATIENT
  Age: 59 Year
  Sex: Male
  Weight: 111.11 kg

DRUGS (1)
  1. ENOXAPARIN SODIUM [Suspect]
     Indication: PULMONARY EMBOLISM
     Dosage: 120 MG, BID
     Dates: start: 20120313, end: 20120320

REACTIONS (6)
  - INJECTION SITE PAIN [None]
  - NAUSEA [None]
  - ABDOMINAL PAIN UPPER [None]
  - HEPATIC NEOPLASM [None]
  - DYSPEPSIA [None]
  - INJECTION SITE HAEMATOMA [None]
